FAERS Safety Report 12968954 (Version 2)
Quarter: 2017Q1

REPORT INFORMATION
  Report Type: Report from Study
  Country: None (occurrence: US)
  Receive Date: 20161123
  Receipt Date: 20170206
  Transmission Date: 20170428
  Serious: Yes (Other)
  Sender: FDA-Public Use
  Company Number: US-ABBVIE-16K-163-1785719-00

PATIENT
  Age: 81 Year
  Sex: Male
  Weight: 68.55 kg

DRUGS (5)
  1. PROSCAR [Concomitant]
     Active Substance: FINASTERIDE
     Indication: URINARY RETENTION
  2. HUMIRA [Suspect]
     Active Substance: ADALIMUMAB
     Indication: COLITIS ULCERATIVE
     Route: 058
     Dates: start: 201609, end: 201609
  3. FLOMAX [Concomitant]
     Active Substance: TAMSULOSIN HYDROCHLORIDE
     Indication: BENIGN PROSTATIC HYPERPLASIA
  4. HUMIRA [Suspect]
     Active Substance: ADALIMUMAB
     Route: 058
     Dates: start: 2016, end: 2016
  5. HUMIRA [Suspect]
     Active Substance: ADALIMUMAB
     Route: 058
     Dates: start: 2016, end: 201612

REACTIONS (4)
  - Rectal haemorrhage [Unknown]
  - Diarrhoea [Unknown]
  - Gastrointestinal inflammation [Not Recovered/Not Resolved]
  - Drug ineffective [Not Recovered/Not Resolved]

NARRATIVE: CASE EVENT DATE: 201609
